FAERS Safety Report 19513493 (Version 2)
Quarter: 2021Q3

REPORT INFORMATION
  Report Type: Spontaneous
  Country: PL (occurrence: PL)
  Receive Date: 20210709
  Receipt Date: 20210803
  Transmission Date: 20211014
  Serious: Yes (Death, Hospitalization, Other)
  Sender: FDA-Public Use
  Company Number: PL-ACCORD-230772

PATIENT
  Age: 75 Year
  Sex: Male

DRUGS (17)
  1. OMEPRAZOLE. [Suspect]
     Active Substance: OMEPRAZOLE
     Indication: PRODUCT USED FOR UNKNOWN INDICATION
     Dosage: 20 MG, QD (TABLET ON EMPTY STOMACH)
     Route: 065
  2. TORASEMIDE [Suspect]
     Active Substance: TORSEMIDE
     Indication: PRODUCT USED FOR UNKNOWN INDICATION
     Dosage: 10 MG, QD IN THE MORNING
     Route: 065
  3. IPP [OMEPRAZOLE] [Suspect]
     Active Substance: OMEPRAZOLE
     Indication: PRODUCT USED FOR UNKNOWN INDICATION
     Dosage: 20 MG, QD IN THE MORNING
     Route: 065
  4. ESOMEPRAZOLE/ESOMEPRAZOLE MAGNESIUM/ESOMEPRAZOLE SODIUM [Suspect]
     Active Substance: ESOMEPRAZOLE
     Indication: PRODUCT USED FOR UNKNOWN INDICATION
     Dosage: 40 MG, QD (1X1 TABLET IN THE MORNING ON THE EMPTY STOMACH)
     Route: 065
  5. RAMIPRIL. [Suspect]
     Active Substance: RAMIPRIL
     Indication: PRODUCT USED FOR UNKNOWN INDICATION
     Dosage: 2.5 MG, BID (1 TABLET (2.5MG) IN THE MORNING AND 1 TABLET IN THE EVENING)
     Route: 065
  6. ALLOPURINOL. [Suspect]
     Active Substance: ALLOPURINOL
     Indication: PRODUCT USED FOR UNKNOWN INDICATION
     Dosage: 300 MG, QD
     Route: 065
  7. BISOPROLOL [Suspect]
     Active Substance: BISOPROLOL
     Indication: PRODUCT USED FOR UNKNOWN INDICATION
     Dosage: 1.25 MG, QD IN THE MORNING
     Route: 065
  8. CLOPIDOGREL [Suspect]
     Active Substance: CLOPIDOGREL BISULFATE
     Indication: PRODUCT USED FOR UNKNOWN INDICATION
     Dosage: UNK UNK, QD
     Route: 065
     Dates: end: 20191127
  9. ATORVASTATIN/ATORVASTATIN CALCIUM [Suspect]
     Active Substance: ATORVASTATIN CALCIUM
     Indication: PRODUCT USED FOR UNKNOWN INDICATION
     Dosage: 10 MG, QD IN THE EVENING
     Route: 065
  10. ESOMEPRAZOLE/ESOMEPRAZOLE MAGNESIUM/ESOMEPRAZOLE SODIUM [Suspect]
     Active Substance: ESOMEPRAZOLE
     Indication: PRODUCT USED FOR UNKNOWN INDICATION
     Dosage: 40 MG, BID (TABLET)
     Route: 065
  11. RAMIPRIL. [Suspect]
     Active Substance: RAMIPRIL
     Indication: PRODUCT USED FOR UNKNOWN INDICATION
     Dosage: 1 TABLET (2.5MG) IN THE MORNING AND HALF TABLET IN THE EVENING
     Route: 065
  12. AMOXICILLIN. [Suspect]
     Active Substance: AMOXICILLIN
     Indication: PRODUCT USED FOR UNKNOWN INDICATION
     Dosage: 1 G, BID
     Route: 065
  13. IPP [OMEPRAZOLE] [Suspect]
     Active Substance: OMEPRAZOLE
     Indication: PRODUCT USED FOR UNKNOWN INDICATION
     Dosage: 10 MG, QD IN THE MORNING
     Route: 065
  14. LEVOFLOXACIN. [Suspect]
     Active Substance: LEVOFLOXACIN
     Indication: INFECTIVE EXACERBATION OF CHRONIC OBSTRUCTIVE AIRWAYS DISEASE
     Route: 042
  15. ALLOPURINOL. [Suspect]
     Active Substance: ALLOPURINOL
     Indication: PRODUCT USED FOR UNKNOWN INDICATION
     Dosage: 100 MG, QD IN THE MORNING
     Route: 065
  16. ENTRESTO [Suspect]
     Active Substance: SACUBITRIL\VALSARTAN
     Indication: PRODUCT USED FOR UNKNOWN INDICATION
     Dosage: 24/26 MG, BID
     Route: 065
  17. BISOPROLOL [Suspect]
     Active Substance: BISOPROLOL
     Indication: PRODUCT USED FOR UNKNOWN INDICATION
     Dosage: 1.875 MG, QD (1X1.5 TABLET IN THE MORNING)
     Route: 065

REACTIONS (46)
  - Coronary artery stenosis [Unknown]
  - COVID-19 pneumonia [Fatal]
  - Productive cough [Unknown]
  - Right ventricular enlargement [Unknown]
  - Wrong technique in product usage process [Unknown]
  - Cataract [Unknown]
  - Asthenia [Unknown]
  - Respiratory disorder [Unknown]
  - Nicotine dependence [Unknown]
  - Type 2 diabetes mellitus [Unknown]
  - Oedema peripheral [Recovered/Resolved]
  - Peripheral venous disease [Recovered/Resolved]
  - Coronary artery disease [Unknown]
  - Atrial fibrillation [Unknown]
  - Pulmonary vascular disorder [Unknown]
  - Duodenitis [Unknown]
  - Blood pressure systolic decreased [Unknown]
  - Helicobacter test positive [Unknown]
  - Exercise tolerance decreased [Unknown]
  - Gastritis [Unknown]
  - Chronic kidney disease [Unknown]
  - Blood glucose increased [Unknown]
  - Ventricular hypokinesia [Unknown]
  - Occult blood positive [Unknown]
  - Gastritis erosive [Unknown]
  - Eye injury [Unknown]
  - Ventricular tachycardia [Unknown]
  - Respiratory tract infection [Unknown]
  - Skin ulcer [Recovered/Resolved]
  - Mitral valve incompetence [Unknown]
  - Dyspnoea [Unknown]
  - Normocytic anaemia [Unknown]
  - Cardiac failure [Unknown]
  - Inferior vena cava dilatation [Unknown]
  - Hiatus hernia [Unknown]
  - Diarrhoea [Unknown]
  - Angina pectoris [Recovered/Resolved]
  - Chest discomfort [Unknown]
  - Cardiac disorder [Unknown]
  - Heart rate irregular [Unknown]
  - Pulmonary hypertension [Unknown]
  - Cardiac aneurysm [Unknown]
  - Ventricular arrhythmia [Unknown]
  - Systolic dysfunction [Unknown]
  - Degenerative mitral valve disease [Unknown]
  - Infective exacerbation of chronic obstructive airways disease [Unknown]
